FAERS Safety Report 8508313-9 (Version None)
Quarter: 2012Q3

REPORT INFORMATION
  Report Type: 
  Country: None (occurrence: None)
  Receive Date: 20120713
  Receipt Date: 20120705
  Transmission Date: 20120928
  Serious: Yes (Hospitalization, Other)
  Sender: FDA-Public Use
  Company Number: US-ABBOTT-12P-163-0953498-00

PATIENT
  Age: 21 Year
  Sex: Male
  Weight: 86.714 kg

DRUGS (1)
  1. HUMIRA [Suspect]
     Indication: CROHN'S DISEASE
     Dates: start: 20120531, end: 20120531

REACTIONS (5)
  - INTESTINAL RESECTION [None]
  - PYREXIA [None]
  - ILEOSTOMY [None]
  - ABDOMINAL ABSCESS [None]
  - RENAL IMPAIRMENT [None]
